FAERS Safety Report 7285472-X (Version None)
Quarter: 2011Q1

REPORT INFORMATION
  Report Type: 
  Country: None (occurrence: None)
  Receive Date: 20110210
  Receipt Date: 20110202
  Transmission Date: 20110831
  Serious: Yes (Other)
  Sender: FDA-Public Use
  Company Number: LB-NOVOPROD-322722

PATIENT
  Age: 67 Year
  Sex: Female
  Weight: 88 kg

DRUGS (4)
  1. VICTOZA [Suspect]
     Indication: DIABETES MELLITUS
     Dosage: 0.6 MG, QD
     Dates: start: 20110114
  2. PHYSIOTENS [Concomitant]
     Indication: HYPERTENSION
     Dosage: 0.2 UNK, QD
     Dates: start: 20000101
  3. ZESTORETIC [Concomitant]
     Indication: HYPERTENSION
     Dosage: 1 TAB, QD
     Route: 048
     Dates: start: 20000101
  4. AMARYL [Concomitant]
     Indication: DIABETES MELLITUS
     Dosage: 6 MG, QD
     Dates: start: 20030101

REACTIONS (2)
  - HEADACHE [None]
  - BLOOD PRESSURE INCREASED [None]
